FAERS Safety Report 7979134-0 (Version None)
Quarter: 2011Q4

REPORT INFORMATION
  Report Type: 
  Country: None (occurrence: None)
  Receive Date: 20111130
  Receipt Date: 20111116
  Transmission Date: 20120403
  Serious: Yes (Death, Life-Threatening, Hospitalization)
  Sender: FDA-Public Use
  Company Number: 2011MA016530

PATIENT
  Age: 85 Year
  Sex: Male
  Weight: 68.0396 kg

DRUGS (13)
  1. METOPROLOL SUCCINATE [Concomitant]
  2. FUROSEMIDE [Concomitant]
  3. LISINOPRIL [Concomitant]
  4. ATROPINE [Concomitant]
  5. AZITHROMYCIN [Concomitant]
  6. BETOPTIC [Concomitant]
  7. LYRICA [Concomitant]
  8. COMBIVENT [Concomitant]
  9. XALATAN [Concomitant]
  10. HUMALOG [Concomitant]
  11. DIGOXIN [Suspect]
     Indication: ATRIAL FIBRILLATION
     Dosage: 0.125 MG;QD;PO
     Route: 048
     Dates: start: 20020101, end: 20080312
  12. EPINEPHRINE [Concomitant]
  13. VYTORIN [Concomitant]

REACTIONS (15)
  - SUDDEN CARDIAC DEATH [None]
  - MULTIPLE INJURIES [None]
  - CARDIAC FAILURE CONGESTIVE [None]
  - RESPIRATION ABNORMAL [None]
  - BLOOD GLUCOSE INCREASED [None]
  - HYPOTENSION [None]
  - ATRIAL FIBRILLATION [None]
  - FALL [None]
  - BUNDLE BRANCH BLOCK LEFT [None]
  - DIABETES MELLITUS [None]
  - CARDIO-RESPIRATORY ARREST [None]
  - ARRHYTHMIA [None]
  - CARDIOMYOPATHY [None]
  - UNRESPONSIVE TO STIMULI [None]
  - INJURY [None]
